FAERS Safety Report 8077461-2 (Version None)
Quarter: 2012Q1

REPORT INFORMATION
  Report Type: 
  Country: None (occurrence: None)
  Receive Date: 20120126
  Receipt Date: 20120126
  Transmission Date: 20120608
  Serious: No
  Sender: FDA-Public Use
  Company Number: None

PATIENT
  Sex: Female

DRUGS (1)
  1. RIBAVIRIN [Suspect]
     Dosage: 800MG QAM PO : 800MG QPM PO : TID PO
     Route: 048
     Dates: start: 20110916

REACTIONS (11)
  - PYREXIA [None]
  - INFLUENZA LIKE ILLNESS [None]
  - HEADACHE [None]
  - DIARRHOEA [None]
  - RASH [None]
  - VOMITING [None]
  - FOOD AVERSION [None]
  - NAUSEA [None]
  - PAIN [None]
  - FATIGUE [None]
  - DYSGEUSIA [None]
